FAERS Safety Report 7525586-X (Version None)
Quarter: 2011Q2

REPORT INFORMATION
  Report Type: 
  Country: None (occurrence: None)
  Receive Date: 20110606
  Receipt Date: 20110523
  Transmission Date: 20111010
  Serious: Yes (Hospitalization)
  Sender: FDA-Public Use
  Company Number: PHHY2010FR91015

PATIENT
  Sex: Female
  Weight: 64 kg

DRUGS (2)
  1. ZOMETA [Suspect]
     Dosage: 4 MG, UNK
     Route: 042
     Dates: start: 20090323, end: 20101101
  2. TAMOXIFEN CITRATE [Concomitant]
     Indication: BREAST CANCER
     Dosage: 20 MG, DAILY
     Dates: start: 20100426

REACTIONS (5)
  - DIZZINESS [None]
  - PAIN [None]
  - NAUSEA [None]
  - VOMITING [None]
  - HEADACHE [None]
